FAERS Safety Report 5092612-X (Version None)
Quarter: 2006Q3

REPORT INFORMATION
  Report Type: 
  Country: None (occurrence: None)
  Receive Date: 20060830
  Receipt Date: 20060822
  Transmission Date: 20061208
  Serious: Yes (Hospitalization)
  Sender: FDA-Public Use
  Company Number: US-BAYER-200615215BWH

PATIENT
  Age: 82 Year
  Sex: Male
  Weight: 58 kg

DRUGS (19)
  1. SORAFENIB [Suspect]
     Indication: THYROID CANCER METASTATIC
     Dosage: TOTAL DAILY DOSE: 800 MG  UNIT DOSE: 200 MG
     Route: 048
     Dates: start: 20060413, end: 20060523
  2. SORAFENIB [Suspect]
     Dosage: TOTAL DAILY DOSE: 400 MG  UNIT DOSE: 200 MG
     Route: 048
     Dates: start: 20060818, end: 20060818
  3. SORAFENIB [Suspect]
     Dosage: TOTAL DAILY DOSE: 400 MG  UNIT DOSE: 200 MG
     Route: 048
     Dates: start: 20060601, end: 20060807
  4. SORAFENIB [Suspect]
     Dosage: TOTAL DAILY DOSE: 200 MG  UNIT DOSE: 200 MG
     Route: 048
     Dates: start: 20060808, end: 20060808
  5. SORAFENIB [Suspect]
     Dosage: TOTAL DAILY DOSE: 200 MG  UNIT DOSE: 200 MG
     Route: 048
     Dates: start: 20060817, end: 20060817
  6. SYNTHROID [Concomitant]
  7. LASIX [Concomitant]
  8. NORVASC [Concomitant]
  9. ALLOPURINOL [Concomitant]
  10. PREVACID [Concomitant]
     Route: 048
  11. NEUTRA-PHOS [Concomitant]
  12. ASPIRIN [Concomitant]
  13. FERROUS GLUCONATE [Concomitant]
  14. ACTOS [Concomitant]
  15. LIPITOR [Concomitant]
  16. M.V.I. [Concomitant]
  17. CALCIUM W/VITAMIN D [Concomitant]
  18. FLOMAX [Concomitant]
  19. FOSAMAX [Concomitant]

REACTIONS (6)
  - BLOOD CALCIUM DECREASED [None]
  - BLOOD GLUCOSE INCREASED [None]
  - BLOOD POTASSIUM DECREASED [None]
  - CONVULSION [None]
  - HYPOMAGNESAEMIA [None]
  - HYPOPHOSPHATAEMIA [None]
